FAERS Safety Report 5249791-0 (Version None)
Quarter: 2007Q1

REPORT INFORMATION
  Report Type: 
  Country: None (occurrence: None)
  Receive Date: 20070228
  Receipt Date: 20070111
  Transmission Date: 20070707
  Serious: No
  Sender: FDA-Public Use
  Company Number: US-GLAXOSMITHKLINE-A0632624A

PATIENT
  Age: 63 Year
  Sex: Male
  Weight: 79.1 kg

DRUGS (2)
  1. IMITREX [Suspect]
     Indication: CLUSTER HEADACHE
     Route: 058
     Dates: start: 19920101
  2. FLOMAX [Concomitant]
     Dates: start: 19910101

REACTIONS (2)
  - RETINAL DYSTROPHY [None]
  - VISUAL FIELD DEFECT [None]
